FAERS Safety Report 9798705 (Version 2)
Quarter: 2015Q3

REPORT INFORMATION
  Report Type: Spontaneous
  Country: US (occurrence: US)
  Receive Date: 20140106
  Receipt Date: 20150806
  Transmission Date: 20151125
  Serious: No
  Sender: FDA-Public Use
  Company Number: US-GILEAD-2010-0029864

PATIENT
  Age: 67 Year
  Sex: Female
  Weight: 90.72 kg

DRUGS (23)
  1. TEMAZEPAM. [Concomitant]
     Active Substance: TEMAZEPAM
  2. GABAPENTIN. [Concomitant]
     Active Substance: GABAPENTIN
  3. ISOSORBIDE. [Concomitant]
     Active Substance: ISOSORBIDE
  4. ALLOPURINOL. [Concomitant]
     Active Substance: ALLOPURINOL
  5. PERCOCET [Concomitant]
     Active Substance: ACETAMINOPHEN\OXYCODONE HYDROCHLORIDE
  6. BENAZEPRIL [Concomitant]
     Active Substance: BENAZEPRIL HYDROCHLORIDE
  7. SIMVASTATIN. [Concomitant]
     Active Substance: SIMVASTATIN
  8. HYDRALAZINE [Concomitant]
     Active Substance: HYDRALAZINE HYDROCHLORIDE
  9. NITROGLYCERIN. [Concomitant]
     Active Substance: NITROGLYCERIN
  10. SYNVISC [Concomitant]
     Active Substance: HYALURONATE SODIUM
  11. METHOCARBAMOL. [Concomitant]
     Active Substance: METHOCARBAMOL
  12. VITAMIN D [Concomitant]
     Active Substance: CHOLECALCIFEROL
  13. LETAIRIS [Suspect]
     Active Substance: AMBRISENTAN
     Indication: PULMONARY ARTERIAL HYPERTENSION
     Route: 048
     Dates: start: 20091030
  14. COLCHICINE. [Concomitant]
     Active Substance: COLCHICINE
  15. TORSEMIDE. [Concomitant]
     Active Substance: TORSEMIDE
  16. PLAVIX [Concomitant]
     Active Substance: CLOPIDOGREL BISULFATE
  17. FISH OIL [Concomitant]
     Active Substance: FISH OIL
  18. DARVOCET-N 100 [Concomitant]
     Active Substance: ACETAMINOPHEN\PROPOXYPHENE NAPSYLATE
  19. GLIPIZIDE. [Concomitant]
     Active Substance: GLIPIZIDE
  20. AMLODIPINE BESYLATE. [Concomitant]
     Active Substance: AMLODIPINE BESYLATE
  21. GAS-X [Concomitant]
     Active Substance: DIMETHICONE
  22. ASPIRIN. [Concomitant]
     Active Substance: ASPIRIN
  23. MULTIVITAMIN [Concomitant]
     Active Substance: VITAMINS

REACTIONS (1)
  - Blood count abnormal [Unknown]
